FAERS Safety Report 20830030 (Version 2)
Quarter: 2022Q2

REPORT INFORMATION
  Report Type: Spontaneous
  Country: DE (occurrence: DE)
  Receive Date: 20220514
  Receipt Date: 20220524
  Transmission Date: 20220721
  Serious: Yes (Other)
  Sender: FDA-Public Use
  Company Number: DE-TEVA-2022-DE-2035786

PATIENT
  Age: 57 Year
  Sex: Male

DRUGS (2)
  1. DICLOFENAC [Suspect]
     Active Substance: DICLOFENAC
     Indication: Actinic keratosis
     Route: 065
     Dates: start: 20220501, end: 20220504
  2. DICLOFENAC [Suspect]
     Active Substance: DICLOFENAC
     Indication: Skin disorder

REACTIONS (5)
  - Hepatitis toxic [Unknown]
  - Wound secretion [Recovered/Resolved]
  - Mass [Recovered/Resolved]
  - Swelling [Recovering/Resolving]
  - Inflammation [Unknown]

NARRATIVE: CASE EVENT DATE: 20220501
